FAERS Safety Report 4896483-3 (Version None)
Quarter: 2006Q1

REPORT INFORMATION
  Report Type: 
  Country: None (occurrence: None)
  Receive Date: 20060131
  Receipt Date: 20051024
  Transmission Date: 20060701
  Serious: Yes (Death, Hospitalization)
  Sender: FDA-Public Use
  Company Number: US-GLAXOSMITHKLINE-A0579394A

PATIENT
  Age: 30 Year
  Sex: Female

DRUGS (5)
  1. IMITREX [Suspect]
     Indication: MIGRAINE
     Dosage: 50MG AS REQUIRED
     Route: 048
  2. METHADONE [Suspect]
  3. COCAINE [Suspect]
  4. PAIN MEDICATION [Concomitant]
  5. ORAL ULCER MEDICATION [Concomitant]

REACTIONS (3)
  - FLUSHING [None]
  - MULTIPLE DRUG OVERDOSE [None]
  - ULCER [None]
